FAERS Safety Report 21534474 (Version 4)
Quarter: 2023Q1

REPORT INFORMATION
  Report Type: Report from Study
  Country: US (occurrence: US)
  Receive Date: 20221101
  Receipt Date: 20230123
  Transmission Date: 20230417
  Serious: Yes (Hospitalization)
  Sender: FDA-Public Use
  Company Number: US-ABBVIE-22K-163-4330057-00

PATIENT
  Age: 76 Year
  Sex: Female

DRUGS (13)
  1. RINVOQ [Suspect]
     Active Substance: UPADACITINIB
     Indication: Rheumatoid arthritis
     Route: 048
     Dates: start: 20211029
  2. RINVOQ [Suspect]
     Active Substance: UPADACITINIB
     Indication: Rheumatoid arthritis
     Route: 048
  3. RINVOQ [Suspect]
     Active Substance: UPADACITINIB
     Indication: Rheumatoid arthritis
     Route: 048
     Dates: start: 20211029
  4. RINVOQ [Suspect]
     Active Substance: UPADACITINIB
     Indication: Rheumatoid arthritis
     Route: 048
  5. RINVOQ [Suspect]
     Active Substance: UPADACITINIB
     Indication: Rheumatoid arthritis
     Route: 048
  6. RINVOQ [Suspect]
     Active Substance: UPADACITINIB
     Indication: Rheumatoid arthritis
     Route: 048
  7. RINVOQ [Suspect]
     Active Substance: UPADACITINIB
     Indication: Rheumatoid arthritis
     Route: 048
  8. MODERNA COVID-19 VACCINE [Suspect]
     Active Substance: ELASOMERAN
     Indication: COVID-19 immunisation
     Dosage: TIME INTERVAL: 1 TOTAL: FIRST DOSE (FREQUENCY- ONE IN ONCE)
     Route: 030
     Dates: start: 20210127, end: 20210127
  9. MODERNA COVID-19 VACCINE [Suspect]
     Active Substance: ELASOMERAN
     Indication: COVID-19 immunisation
     Dosage: TIME INTERVAL: 1 TOTAL: SECOND DOSE  (FREQUENCY- ONE IN ONCE)
     Route: 030
     Dates: start: 20210224, end: 20210224
  10. MODERNA COVID-19 VACCINE [Suspect]
     Active Substance: ELASOMERAN
     Indication: COVID-19 immunisation
     Dosage: TIME INTERVAL: 1 TOTAL: FIRST BOOSTER DOSE  (FREQUENCY- ONE IN ONCE)
     Route: 030
     Dates: start: 20210826, end: 20210826
  11. MODERNA COVID-19 VACCINE [Suspect]
     Active Substance: ELASOMERAN
     Indication: COVID-19 immunisation
     Dosage: TIME INTERVAL: 1 TOTAL: SECOND BOOSTER  DOSE (FREQUENCY- ONE IN ONCE)
     Route: 030
     Dates: start: 20220413, end: 20220413
  12. MODERNA COVID-19 VACCINE [Suspect]
     Active Substance: ELASOMERAN
     Indication: COVID-19 immunisation
     Dosage: THIRD BOOSTER DOSE (FREQUENCY -ONE IN ONCE)
     Route: 030
     Dates: start: 20220929, end: 20220929
  13. INFLUENZA VIRUS VACCINE [Concomitant]
     Active Substance: INFLUENZA VIRUS VACCINE
     Indication: Product used for unknown indication

REACTIONS (14)
  - Pneumonia [Recovering/Resolving]
  - Nasopharyngitis [Unknown]
  - Memory impairment [Not Recovered/Not Resolved]
  - Finger deformity [Not Recovered/Not Resolved]
  - Amnesia [Not Recovered/Not Resolved]
  - Increased appetite [Not Recovered/Not Resolved]
  - Dementia Alzheimer^s type [Not Recovered/Not Resolved]
  - Blood cholesterol increased [Unknown]
  - Sleep apnoea syndrome [Not Recovered/Not Resolved]
  - Amnesia [Not Recovered/Not Resolved]
  - Weight increased [Not Recovered/Not Resolved]
  - Pain [Unknown]
  - Pneumonia [Recovered/Resolved]
  - Oxygen saturation decreased [Unknown]

NARRATIVE: CASE EVENT DATE: 20211218
